FAERS Safety Report 10562367 (Version 1)
Quarter: 2014Q4

REPORT INFORMATION
  Report Type: Spontaneous
  Country: JP (occurrence: None)
  Receive Date: 20141031
  Receipt Date: 20141031
  Transmission Date: 20150529
  Serious: Yes (Hospitalization, Other)
  Sender: FDA-Public Use
  Company Number: A201410048

PATIENT
  Age: 46 Year
  Sex: Male

DRUGS (9)
  1. SAMITREL (ATOVAQUONE) [Concomitant]
  2. VALIXA (VALGANCICLOVIR) [Concomitant]
  3. ABACAVIR SULFATE + LAMIVUDINE [Suspect]
     Active Substance: ABACAVIR SULFATE\LAMIVUDINE
     Indication: HIV INFECTION
     Route: 048
     Dates: start: 20120417, end: 20120418
  4. BAKTAR [Suspect]
     Active Substance: SULFAMETHOXAZOLE\TRIMETHOPRIM
     Indication: PNEUMOCYSTIS JIROVECII PNEUMONIA
     Dates: start: 20130227, end: 20130305
  5. ZITHROMAC [Concomitant]
     Active Substance: AZITHROMYCIN DIHYDRATE
  6. ZIAGEN (ABACAVIR SULFATE) [Concomitant]
  7. VALIXA (VALGANCICLOVIR) [Concomitant]
  8. ISENTRESS [Suspect]
     Active Substance: RALTEGRAVIR POTASSIUM
     Indication: HIV INFECTION
     Route: 048
     Dates: start: 20120417, end: 20120418
  9. EPIVIR (LAMIVUDINE) [Concomitant]

REACTIONS (6)
  - Immune reconstitution inflammatory syndrome [None]
  - Rhinorrhoea [None]
  - Pneumocystis jirovecii pneumonia [None]
  - Pyrexia [None]
  - Cough [None]
  - Nausea [None]

NARRATIVE: CASE EVENT DATE: 20130211
